FAERS Safety Report 18421037 (Version 4)
Quarter: 2020Q4

REPORT INFORMATION
  Report Type: Spontaneous
  Country: US (occurrence: US)
  Receive Date: 20201023
  Receipt Date: 20201130
  Transmission Date: 20210114
  Serious: Yes (Other)
  Sender: FDA-Public Use
  Company Number: US-BAYER-2020-223171

PATIENT
  Age: 47 Year
  Sex: Female

DRUGS (5)
  1. TRAMADOL. [Concomitant]
     Active Substance: TRAMADOL
  2. MIRENA [Suspect]
     Active Substance: LEVONORGESTREL
     Indication: CONTRACEPTION
     Dosage: 20 ?G PER DAY CONTINUOUSLY
     Route: 015
     Dates: start: 20151021, end: 20201008
  3. HYDROCODONE [Concomitant]
     Active Substance: HYDROCODONE
  4. ALPRAZOLAM. [Concomitant]
     Active Substance: ALPRAZOLAM
  5. MISOPROSTOL. [Concomitant]
     Active Substance: MISOPROSTOL

REACTIONS (3)
  - Device breakage [Not Recovered/Not Resolved]
  - Abdominal pain lower [None]
  - Complication of device removal [None]

NARRATIVE: CASE EVENT DATE: 20201008
